FAERS Safety Report 5735457-7 (Version None)
Quarter: 2008Q2

REPORT INFORMATION
  Report Type: 
  Country: None (occurrence: None)
  Receive Date: 20080512
  Receipt Date: 20080502
  Transmission Date: 20081010
  Serious: Yes (Congenital Anomaly, Other)
  Sender: FDA-Public Use
  Company Number: GB-ABBOTT-07P-167-0374442-00

PATIENT
  Sex: Male
  Weight: 3.96 kg

DRUGS (1)
  1. VALPROIC ACID [Suspect]
     Indication: DRUG EXPOSURE DURING PREGNANCY
     Route: 064

REACTIONS (43)
  - ABDOMINAL PAIN [None]
  - ABNORMAL BEHAVIOUR [None]
  - ADENOIDAL HYPERTROPHY [None]
  - AGGRESSION [None]
  - ASOCIAL BEHAVIOUR [None]
  - AUTISM SPECTRUM DISORDER [None]
  - CHOKING [None]
  - COMMUNICATION DISORDER [None]
  - CONGENITAL FOOT MALFORMATION [None]
  - CONGENITAL LARYNGEAL STRIDOR [None]
  - CONGENITAL NOSE MALFORMATION [None]
  - CONSTIPATION [None]
  - COORDINATION ABNORMAL [None]
  - CYANOSIS [None]
  - DISTURBANCE IN ATTENTION [None]
  - DRUG EXPOSURE DURING PREGNANCY [None]
  - DYSMORPHISM [None]
  - EAR DISORDER [None]
  - EAR PAIN [None]
  - FEBRILE CONVULSION [None]
  - FOETAL ANTICONVULSANT SYNDROME [None]
  - FOOT DEFORMITY [None]
  - GRUNTING [None]
  - HEAD BANGING [None]
  - HIP DYSPLASIA [None]
  - HYPERACUSIS [None]
  - INTENTIONAL SELF-INJURY [None]
  - LARYNGOMALACIA [None]
  - LIP DISORDER [None]
  - MYOPIA [None]
  - OBSTRUCTIVE AIRWAYS DISORDER [None]
  - OXYGEN SATURATION DECREASED [None]
  - PHOBIA [None]
  - PLEURAL EFFUSION [None]
  - PNEUMOTHORAX [None]
  - RESPIRATION ABNORMAL [None]
  - RESPIRATORY DISORDER [None]
  - RESPIRATORY DISTRESS [None]
  - RETCHING [None]
  - SLEEP DISORDER [None]
  - SPEECH DISORDER DEVELOPMENTAL [None]
  - TACHYCARDIA [None]
  - VOMITING [None]
